FAERS Safety Report 15852448 (Version 1)
Quarter: 2019Q1

REPORT INFORMATION
  Report Type: Spontaneous
  Country: FR (occurrence: FR)
  Receive Date: 20190122
  Receipt Date: 20190122
  Transmission Date: 20190417
  Serious: Yes (Other)
  Sender: FDA-Public Use
  Company Number: FR-TEVA-2019-FR-1001697

PATIENT
  Age: 56 Year
  Sex: Male

DRUGS (3)
  1. SIMVASTATIN. [Suspect]
     Active Substance: SIMVASTATIN
     Dosage: UNK
  2. MICARDIS [Suspect]
     Active Substance: TELMISARTAN
     Dosage: UNK
     Dates: start: 2017
  3. EZETROL [Suspect]
     Active Substance: EZETIMIBE
     Dosage: UNK
     Dates: start: 2013

REACTIONS (2)
  - Hepatitis E [Unknown]
  - Blood creatine phosphokinase increased [Unknown]

NARRATIVE: CASE EVENT DATE: 20181106
